FAERS Safety Report 7961079-3 (Version None)
Quarter: 2011Q4

REPORT INFORMATION
  Report Type: 
  Country: None (occurrence: None)
  Receive Date: 20111207
  Receipt Date: 20111122
  Transmission Date: 20120403
  Serious: Yes (Other)
  Sender: FDA-Public Use
  Company Number: US-ENDO PHARMACEUTICALS INC.-PREV20110032

PATIENT
  Sex: Female
  Weight: 57.204 kg

DRUGS (3)
  1. PREVIFEM [Suspect]
     Indication: PELVIC PAIN
  2. PREVIFEM [Suspect]
     Indication: CONTRACEPTION
     Dosage: 1 TABLET
     Route: 048
     Dates: start: 20090401, end: 20110101
  3. PREVIFEM [Suspect]
     Indication: DYSMENORRHOEA

REACTIONS (3)
  - PREGNANCY ON ORAL CONTRACEPTIVE [None]
  - DRUG INEFFECTIVE [None]
  - ABORTION INDUCED [None]
